FAERS Safety Report 21551215 (Version 7)
Quarter: 2023Q1

REPORT INFORMATION
  Report Type: Report from Study
  Country: CO (occurrence: CO)
  Receive Date: 20221104
  Receipt Date: 20230301
  Transmission Date: 20230418
  Serious: Yes (Life-Threatening, Other)
  Sender: FDA-Public Use
  Company Number: CO-002147023-NVSC2022CO159381

PATIENT
  Age: 57 Year
  Sex: Female
  Weight: 94 kg

DRUGS (8)
  1. KISQALI [Suspect]
     Active Substance: RIBOCICLIB
     Indication: Breast cancer metastatic
     Dosage: 600 MG, QD (2 OF 300 MG)
     Route: 048
     Dates: start: 202205, end: 202208
  2. KISQALI [Suspect]
     Active Substance: RIBOCICLIB
     Dosage: 400 MG, QD (2 OF 200 MG)
     Route: 048
     Dates: start: 20220913
  3. KISQALI [Suspect]
     Active Substance: RIBOCICLIB
     Dosage: UNK, QD
     Route: 048
     Dates: end: 20221005
  4. KISQALI [Suspect]
     Active Substance: RIBOCICLIB
     Dosage: 200 MG, QD
     Route: 048
  5. KISQALI [Suspect]
     Active Substance: RIBOCICLIB
     Dosage: 1 DOSAGE FORM, QD (21 DAYS)
     Route: 065
  6. KISQALI [Suspect]
     Active Substance: RIBOCICLIB
     Dosage: UNK
     Route: 048
  7. FULVESTRANT [Suspect]
     Active Substance: FULVESTRANT
     Indication: Breast cancer
     Dosage: 500 MG, 28D (EVERY 28 DAYS)
     Route: 030
     Dates: start: 202205
  8. HYDROCHLOROTHIAZIDE [Concomitant]
     Active Substance: HYDROCHLOROTHIAZIDE
     Indication: Hypertension
     Dosage: UNK, Q12H (SINCE 8 YEARS AGO)
     Route: 048

REACTIONS (20)
  - Transaminases increased [Unknown]
  - Loss of consciousness [Recovering/Resolving]
  - Breast cancer [Unknown]
  - Malignant neoplasm progression [Unknown]
  - Metastases to central nervous system [Unknown]
  - Hemiplegia [Unknown]
  - Decreased immune responsiveness [Unknown]
  - General physical health deterioration [Unknown]
  - Hyperhidrosis [Unknown]
  - Condition aggravated [Unknown]
  - Body temperature decreased [Unknown]
  - Obesity [Unknown]
  - Pain in extremity [Unknown]
  - Abdominal discomfort [Recovering/Resolving]
  - Vision blurred [Unknown]
  - Dizziness [Recovering/Resolving]
  - Constipation [Unknown]
  - Nausea [Recovering/Resolving]
  - Speech disorder [Unknown]
  - Drug ineffective [Unknown]

NARRATIVE: CASE EVENT DATE: 20220801
